FAERS Safety Report 7910500-5 (Version None)
Quarter: 2011Q4

REPORT INFORMATION
  Report Type: 
  Country: None (occurrence: None)
  Receive Date: 20111111
  Receipt Date: 20111102
  Transmission Date: 20120403
  Serious: Yes (Death, Hospitalization, Other)
  Sender: FDA-Public Use
  Company Number: PHHO2011DE02336

PATIENT
  Sex: Female
  Weight: 60 kg

DRUGS (6)
  1. DICLOFENAC SODIUM [Suspect]
     Dosage: UNK
     Dates: start: 20110201
  2. ASTONIN-H [Concomitant]
  3. SOM230 [Suspect]
     Indication: NEUROENDOCRINE TUMOUR
     Dosage: 60 MG, UNK
     Route: 030
     Dates: start: 20100615, end: 20110201
  4. HYDROCORTISONE [Suspect]
  5. ZOLEDRONIC [Concomitant]
     Indication: METASTASES TO BONE
     Dosage: UNK
  6. MORPHINE [Suspect]

REACTIONS (17)
  - PANCYTOPENIA [None]
  - HAEMATEMESIS [None]
  - ANAEMIA [None]
  - BACK PAIN [None]
  - HEADACHE [None]
  - NAUSEA [None]
  - ADRENOCORTICAL INSUFFICIENCY ACUTE [None]
  - THROMBOCYTOPENIA [None]
  - HYPONATRAEMIA [None]
  - DISTURBANCE IN ATTENTION [None]
  - VOMITING [None]
  - ELECTROLYTE IMBALANCE [None]
  - NEOPLASM MALIGNANT [None]
  - EPISTAXIS [None]
  - HYPERTENSION [None]
  - METASTASIS [None]
  - HORNER'S SYNDROME [None]
